FAERS Safety Report 15231482 (Version 5)
Quarter: 2020Q3

REPORT INFORMATION
  Report Type: Spontaneous
  Country: JP (occurrence: JP)
  Receive Date: 20180802
  Receipt Date: 20200706
  Transmission Date: 20201102
  Serious: Yes (Hospitalization)
  Sender: FDA-Public Use
  Company Number: JP-ACTELION-A-CH2017-163913

PATIENT
  Age: 45 Year
  Sex: Female

DRUGS (49)
  1. PREDONINE [Concomitant]
     Active Substance: PREDNISOLONE
     Dosage: 4.0 MG, QD
     Dates: start: 20170518, end: 20170614
  2. WARFARIN [Suspect]
     Active Substance: WARFARIN
     Dosage: 4.25 MG, QD
     Route: 048
     Dates: start: 20170305, end: 20170307
  3. PREDONINE [Concomitant]
     Active Substance: PREDNISOLONE
     Indication: RADIATION PNEUMONITIS
     Dosage: 2.5 MG, QD
     Dates: end: 20170207
  4. PREDONINE [Concomitant]
     Active Substance: PREDNISOLONE
     Indication: CONCOMITANT DISEASE AGGRAVATED
     Dosage: 1 MG, QD
     Dates: start: 20170208, end: 20170308
  5. PREDONINE [Concomitant]
     Active Substance: PREDNISOLONE
     Dosage: 5 MG, QD
     Dates: end: 20170419
  6. FAMOTIDINE. [Concomitant]
     Active Substance: FAMOTIDINE
     Indication: GASTROOESOPHAGEAL REFLUX DISEASE
     Dosage: 10 MG, QD
     Dates: end: 20171214
  7. ETIZOLAM [Concomitant]
     Active Substance: ETIZOLAM
     Indication: INSOMNIA
     Dosage: 1 MG, QD
     Dates: end: 20170510
  8. REVATIO [Concomitant]
     Active Substance: SILDENAFIL CITRATE
  9. ADCIRCA [Concomitant]
     Active Substance: TADALAFIL
  10. UPTRAVI [Suspect]
     Active Substance: SELEXIPAG
     Dosage: 0.6 MG, BID
     Route: 048
     Dates: start: 20170207, end: 20170209
  11. UPTRAVI [Suspect]
     Active Substance: SELEXIPAG
     Dosage: 0.8 MG, BID
     Route: 048
     Dates: start: 20170210, end: 20170213
  12. MAGNESIUM OXIDE. [Suspect]
     Active Substance: MAGNESIUM OXIDE
     Indication: CONSTIPATION
     Dosage: 330 MG, PRN
     Route: 048
     Dates: start: 20160623
  13. WARFARIN [Suspect]
     Active Substance: WARFARIN
     Dosage: 4.0 MG, QD
     Route: 048
     Dates: start: 20170615, end: 20170712
  14. BONALON [Concomitant]
     Active Substance: ALENDRONATE SODIUM
     Dosage: 35 MG, QD
  15. EPOPROSTENOL ACT [Suspect]
     Active Substance: EPOPROSTENOL
     Dosage: 65.5?81 NG/KG, PER MIN
     Route: 042
     Dates: end: 2019
  16. ADEMPAS [Suspect]
     Active Substance: RIOCIGUAT
     Indication: PULMONARY ARTERIAL HYPERTENSION
     Dosage: 2.5 MG, TID
     Route: 048
     Dates: start: 20150618, end: 20171214
  17. ADEMPAS [Suspect]
     Active Substance: RIOCIGUAT
     Dosage: 2.5 MG, TID
     Route: 048
     Dates: start: 20171215, end: 20180405
  18. WARFARIN [Suspect]
     Active Substance: WARFARIN
     Indication: THROMBOSIS PROPHYLAXIS
     Dosage: 4.75 MG, QD
     Route: 048
     Dates: start: 20150513, end: 20170304
  19. WARFARIN [Suspect]
     Active Substance: WARFARIN
     Dosage: 4.25 MG, QD
     Route: 048
     Dates: start: 20170323, end: 20170614
  20. REBAMIPIDE [Concomitant]
     Active Substance: REBAMIPIDE
  21. BAKTAR [Concomitant]
     Active Substance: SULFAMETHOXAZOLE\TRIMETHOPRIM
     Dosage: 1 DF, QD
  22. VOLIBRIS [Concomitant]
     Active Substance: AMBRISENTAN
  23. SAMSCA [Concomitant]
     Active Substance: TOLVAPTAN
  24. UPTRAVI [Suspect]
     Active Substance: SELEXIPAG
     Dosage: 1.0 MG, QD
     Route: 048
     Dates: start: 20170214, end: 20170220
  25. FUROSEMIDE. [Suspect]
     Active Substance: FUROSEMIDE
     Dosage: UNK UNK, QD
     Route: 048
  26. FUROSEMIDE. [Suspect]
     Active Substance: FUROSEMIDE
     Dosage: 60 MG, QD
     Route: 048
     Dates: end: 2019
  27. MAGNESIUM OXIDE. [Suspect]
     Active Substance: MAGNESIUM OXIDE
     Dosage: 330 MG, TID
     Route: 048
     Dates: end: 20171214
  28. PREDONINE [Concomitant]
     Active Substance: PREDNISOLONE
     Dosage: 4.5 MG, QD
     Dates: start: 20170420, end: 20170517
  29. PREDONINE [Concomitant]
     Active Substance: PREDNISOLONE
     Dosage: 3.5 MG, QD
     Dates: start: 20170615
  30. ZOMIG [Concomitant]
     Active Substance: ZOLMITRIPTAN
     Indication: MIGRAINE
     Dosage: 2.5 MG, QD
     Dates: end: 20170219
  31. UPTRAVI [Suspect]
     Active Substance: SELEXIPAG
     Dosage: 1.2 MG, BID
     Route: 048
     Dates: start: 20170221, end: 20170304
  32. UPTRAVI [Suspect]
     Active Substance: SELEXIPAG
     Dosage: 1.2 MG, BID
     Route: 048
     Dates: start: 20170323, end: 20170426
  33. UPTRAVI [Suspect]
     Active Substance: SELEXIPAG
     Dosage: 1.4 MG, BID
     Route: 048
     Dates: start: 20170427, end: 20170510
  34. UPTRAVI [Suspect]
     Active Substance: SELEXIPAG
     Dosage: 1.6 MG, BID
     Route: 048
     Dates: start: 20170511, end: 20171206
  35. EPOPROSTENOL ACT [Suspect]
     Active Substance: EPOPROSTENOL
     Indication: PULMONARY HYPERTENSION
     Dosage: 10?20 NG/KG, PER MIN
     Route: 042
     Dates: start: 20171219
  36. EPOPROSTENOL ACT [Suspect]
     Active Substance: EPOPROSTENOL
     Dosage: 20?65.5 NG/KG, PER MIN
     Route: 042
  37. FUROSEMIDE. [Suspect]
     Active Substance: FUROSEMIDE
     Indication: HYPERTENSION
     Dosage: 20 MG, QD
     Route: 048
     Dates: start: 20150424
  38. NEXIUM [Concomitant]
     Active Substance: ESOMEPRAZOLE MAGNESIUM
     Indication: GASTROOESOPHAGEAL REFLUX DISEASE
     Dosage: 20 MG, QD
  39. PREDONINE [Concomitant]
     Active Substance: PREDNISOLONE
     Dosage: 25 MG, QD
     Dates: start: 20180309
  40. PREDONINE [Concomitant]
     Active Substance: PREDNISOLONE
     Dosage: 20 MG, QD
     Dates: start: 20180326
  41. SLOW K [Concomitant]
     Active Substance: POTASSIUM CHLORIDE
  42. OPSUMIT [Suspect]
     Active Substance: MACITENTAN
     Indication: PULMONARY ARTERIAL HYPERTENSION
     Dosage: 10 MG, QD
     Route: 048
     Dates: start: 20161220, end: 20190302
  43. UPTRAVI [Suspect]
     Active Substance: SELEXIPAG
     Dosage: 1.0 MG, BID
     Route: 048
     Dates: start: 20170305, end: 20170322
  44. UPTRAVI [Suspect]
     Active Substance: SELEXIPAG
     Indication: PULMONARY ARTERIAL HYPERTENSION
     Dosage: 0.2 MG, BID
     Route: 048
     Dates: start: 20170130, end: 20170202
  45. UPTRAVI [Suspect]
     Active Substance: SELEXIPAG
     Dosage: 0.4 MG, BID
     Route: 048
     Dates: start: 20170202, end: 20170206
  46. WARFARIN [Suspect]
     Active Substance: WARFARIN
     Dosage: 4.5 MG, QD
     Route: 048
     Dates: start: 20170308, end: 20170308
  47. WARFARIN [Suspect]
     Active Substance: WARFARIN
     Dosage: 4.0 MG, QD
     Route: 048
     Dates: start: 20170309, end: 20170322
  48. WARFARIN [Suspect]
     Active Substance: WARFARIN
     Dosage: 3.5 MG, QD
     Route: 048
     Dates: start: 20170713, end: 20171214
  49. BERASUS [Concomitant]
     Active Substance: BERAPROST SODIUM
     Indication: PULMONARY ARTERIAL HYPERTENSION
     Dosage: 120 MCG, QD
     Dates: end: 20170206

REACTIONS (27)
  - Radiation pneumonitis [Recovering/Resolving]
  - Cardiothoracic ratio increased [Recovering/Resolving]
  - Upper respiratory tract inflammation [Recovered/Resolved]
  - Iron deficiency anaemia [Unknown]
  - Pulmonary hypertension [Recovering/Resolving]
  - Blood pressure decreased [Recovered/Resolved]
  - Influenza [Recovered/Resolved]
  - Oedema [Recovering/Resolving]
  - Malaise [Recovering/Resolving]
  - Bronchitis [Recovering/Resolving]
  - Headache [Recovering/Resolving]
  - Alanine aminotransferase increased [Recovered/Resolved]
  - Brain natriuretic peptide increased [Not Recovered/Not Resolved]
  - Hot flush [Recovered/Resolved]
  - Hepatic function abnormal [Recovered/Resolved]
  - Erythema [Recovering/Resolving]
  - Diarrhoea [Not Recovered/Not Resolved]
  - Uterine haemorrhage [Recovered/Resolved]
  - Hypotension [Not Recovered/Not Resolved]
  - Cough [Recovering/Resolving]
  - Vertigo [Recovered/Resolved]
  - Purpura [Recovered/Resolved]
  - Concomitant disease aggravated [Recovering/Resolving]
  - Aspartate aminotransferase increased [Recovered/Resolved]
  - Nausea [Recovering/Resolving]
  - Pain in extremity [Recovered/Resolved]
  - Pain in jaw [Recovering/Resolving]

NARRATIVE: CASE EVENT DATE: 20170107
